FAERS Safety Report 9128697 (Version 1)
Quarter: 2013Q1

REPORT INFORMATION
  Report Type: Spontaneous
  Country: BR (occurrence: BR)
  Receive Date: 20130125
  Receipt Date: 20130125
  Transmission Date: 20140127
  Serious: Yes (Other)
  Sender: FDA-Public Use
  Company Number: BR-AMGEN-BRASP2012051461

PATIENT
  Age: 38 Year
  Sex: Female
  Weight: 64 kg

DRUGS (3)
  1. ENBREL [Suspect]
     Indication: ANKYLOSING SPONDYLITIS
     Dosage: 50 MG,1X/WEEK
     Route: 058
     Dates: start: 201104, end: 201203
  2. ENBREL [Suspect]
     Dosage: 50 MG, 1X/WEEK
     Route: 058
     Dates: start: 201204
  3. ENBREL [Suspect]
     Dosage: UNK
     Route: 058
     Dates: start: 20130103

REACTIONS (9)
  - Formication [Recovering/Resolving]
  - Incorrect product storage [Unknown]
  - Ectopic pregnancy [Unknown]
  - Injection site warmth [Recovering/Resolving]
  - Injection site oedema [Recovering/Resolving]
  - Injection site erythema [Recovering/Resolving]
  - Product quality issue [Unknown]
  - Pain [Unknown]
  - Injection site pain [Unknown]
